FAERS Safety Report 11403113 (Version 1)
Quarter: 2015Q3

REPORT INFORMATION
  Report Type: Spontaneous
  Country: US (occurrence: US)
  Receive Date: 20150821
  Receipt Date: 20150821
  Transmission Date: 20151125
  Serious: No
  Sender: FDA-Public Use
  Company Number: US-009507513-1508USA005717

PATIENT
  Age: 21 Year
  Sex: Female

DRUGS (1)
  1. NUVARING [Suspect]
     Active Substance: ETHINYL ESTRADIOL\ETONOGESTREL
     Indication: CONTRACEPTION
     Dosage: RING USED CONTINUOUSLY WITHOUT RING FREE WEEK
     Route: 067
     Dates: end: 20150812

REACTIONS (5)
  - Inappropriate schedule of drug administration [Unknown]
  - Cervix disorder [Unknown]
  - Tenderness [Unknown]
  - Drug prescribing error [Unknown]
  - Coital bleeding [Unknown]

NARRATIVE: CASE EVENT DATE: 201508
